FAERS Safety Report 18435399 (Version 2)
Quarter: 2020Q4

REPORT INFORMATION
  Report Type: Spontaneous
  Country: US (occurrence: US)
  Receive Date: 20201027
  Receipt Date: 20201202
  Transmission Date: 20210114
  Serious: No
  Sender: FDA-Public Use
  Company Number: US-SA-2020SA302140

PATIENT

DRUGS (4)
  1. PREDNISONE. [Concomitant]
     Active Substance: PREDNISONE
     Dosage: TAPERING DOSE
     Dates: start: 2020
  2. DUPIXENT [Suspect]
     Active Substance: DUPILUMAB
     Indication: NASAL POLYPS
     Dosage: 300 MG, QOW
     Route: 058
     Dates: start: 20200909, end: 2020
  3. PREDNISONE. [Concomitant]
     Active Substance: PREDNISONE
  4. DUPIXENT [Suspect]
     Active Substance: DUPILUMAB
     Indication: SINUS DISORDER
     Dosage: 300 MG, QOW
     Route: 058
     Dates: start: 20201001

REACTIONS (10)
  - Erythema [Unknown]
  - Cough [Recovered/Resolved]
  - Rash erythematous [Unknown]
  - Middle insomnia [Unknown]
  - Acne [Unknown]
  - Asthenia [Unknown]
  - Pyrexia [Unknown]
  - Asthma [Unknown]
  - Product use in unapproved indication [Unknown]
  - Rash macular [Unknown]

NARRATIVE: CASE EVENT DATE: 2020
